FAERS Safety Report 7550076-8 (Version None)
Quarter: 2011Q2

REPORT INFORMATION
  Report Type: 
  Country: None (occurrence: None)
  Receive Date: 20110615
  Receipt Date: 20110615
  Transmission Date: 20111010
  Serious: Yes (Hospitalization)
  Sender: FDA-Public Use
  Company Number: IE-PFIZER INC-2011124925

PATIENT
  Age: 8 Year
  Sex: Male

DRUGS (9)
  1. NEURONTIN [Suspect]
     Indication: RHABDOMYOSARCOMA RECURRENT
     Dosage: 100 MG AT NIGHT
     Route: 048
     Dates: start: 20110325, end: 20110328
  2. MS CONTIN [Concomitant]
     Dosage: 30 MG, 2X/DAY
     Route: 048
  3. ONDANSETRON [Concomitant]
  4. SEVREDOL [Concomitant]
     Dosage: 30 MG, 2X/DAY
     Route: 048
  5. PARACETAMOL [Concomitant]
     Route: 048
  6. NEURONTIN [Suspect]
     Dosage: 260 MG, 2X/DAY
     Route: 048
     Dates: end: 20110328
  7. DULCOLAX [Concomitant]
     Dosage: 5 MG, 2X/DAY
     Route: 048
  8. CLONIDINE [Concomitant]
     Dosage: 25 UG, UNK
     Route: 048
  9. NEURONTIN [Suspect]
     Indication: ANALGESIC THERAPY
     Dosage: 260 MG AT NIGHT
     Route: 048

REACTIONS (1)
  - TUBULOINTERSTITIAL NEPHRITIS [None]
